FAERS Safety Report 13254345 (Version 1)
Quarter: 2017Q1

REPORT INFORMATION
  Report Type: Spontaneous
  Country: US (occurrence: US)
  Receive Date: 20170221
  Receipt Date: 20170221
  Transmission Date: 20170428
  Serious: No
  Sender: FDA-Public Use
  Company Number: US-TEVA-655808USA

PATIENT
  Sex: Male
  Weight: 92.62 kg

DRUGS (1)
  1. FLUOCINONIDE. [Suspect]
     Active Substance: FLUOCINONIDE
     Indication: ECZEMA
     Dosage: .1 PERCENT DAILY;
     Route: 061
     Dates: start: 201601, end: 201603

REACTIONS (5)
  - Eczema [Unknown]
  - Erythema [Recovering/Resolving]
  - Inflammation [Recovering/Resolving]
  - Drug ineffective [Unknown]
  - Skin lesion [Recovering/Resolving]

NARRATIVE: CASE EVENT DATE: 2016
